FAERS Safety Report 6059734-8 (Version None)
Quarter: 2009Q1

REPORT INFORMATION
  Report Type: 
  Country: None (occurrence: None)
  Receive Date: 20090130
  Receipt Date: 20090128
  Transmission Date: 20090719
  Serious: Yes (Other)
  Sender: FDA-Public Use
  Company Number: TR-ABBOTT-09P-161-0500310-00

PATIENT
  Age: 9 Year
  Sex: Male
  Weight: 45 kg

DRUGS (1)
  1. IBUPROFEN TABLETS [Suspect]
     Indication: PYREXIA
     Route: 048
     Dates: start: 20090127, end: 20090127

REACTIONS (2)
  - ERYTHEMA [None]
  - SWELLING [None]
